FAERS Safety Report 11187077 (Version 1)
Quarter: 2015Q2

REPORT INFORMATION
  Report Type: Spontaneous
  Country: US (occurrence: US)
  Receive Date: 20150615
  Receipt Date: 20150615
  Transmission Date: 20150821
  Serious: Yes (Life-Threatening, Hospitalization)
  Sender: FDA-Public Use
  Company Number: US-JNJFOC-20150518100

PATIENT
  Sex: Male

DRUGS (1)
  1. LEVAQUIN [Suspect]
     Active Substance: LEVOFLOXACIN
     Indication: COLONIC ABSCESS
     Route: 042

REACTIONS (4)
  - Cardio-respiratory arrest [Recovered/Resolved]
  - Product use issue [Unknown]
  - Intentional product use issue [Unknown]
  - Seizure [Recovered/Resolved]
